FAERS Safety Report 18500633 (Version 1)
Quarter: 2020Q4

REPORT INFORMATION
  Report Type: Spontaneous
  Country: CH (occurrence: CH)
  Receive Date: 20201113
  Receipt Date: 20201113
  Transmission Date: 20210114
  Serious: Yes (Other)
  Sender: FDA-Public Use
  Company Number: CH-TEVA-2020-CH-1849177

PATIENT

DRUGS (11)
  1. PREDNISONE. [Concomitant]
     Active Substance: PREDNISONE
     Dosage: 5 MG/D
     Dates: start: 20191130, end: 20200318
  2. PREDNISONE. [Concomitant]
     Active Substance: PREDNISONE
     Dosage: INCREASED AGAIN
     Dates: start: 20200330
  3. ILARIS [Concomitant]
     Active Substance: CANAKINUMAB
     Dosage: 150 MG S. ADMINISTERED ON 14-OCT-2016, 18-NOV-2016 AND 16-DEC-2016, 23-FEB-2017...
     Dates: start: 20161014, end: 20180613
  4. PREDNISONE. [Concomitant]
     Active Substance: PREDNISONE
     Dosage: 1.25 MG/D
     Dates: start: 20200318, end: 20200330
  5. METHOTREXATE. [Suspect]
     Active Substance: METHOTREXATE
     Route: 058
     Dates: start: 20200122, end: 20200330
  6. ILARIS [Concomitant]
     Active Substance: CANAKINUMAB
     Dosage: THREE TIMES MONTHLY
     Dates: start: 201812, end: 201909
  7. PREDNISONE. [Concomitant]
     Active Substance: PREDNISONE
     Dosage: 2.5 MG/D
     Dates: start: 201911, end: 20191130
  8. ILARIS [Concomitant]
     Active Substance: CANAKINUMAB
     Dosage: MONTHLY DOSE
     Dates: start: 20180822, end: 201810
  9. ILARIS [Concomitant]
     Active Substance: CANAKINUMAB
     Dosage: TWICE MONTHLY
     Dates: start: 201810, end: 201812
  10. ILARIS [Concomitant]
     Active Substance: CANAKINUMAB
     Dosage: MONTHLY DOSE
     Dates: start: 201909, end: 202006
  11. PREDNISONE. [Concomitant]
     Active Substance: PREDNISONE
     Dosage: 5 TIMES
     Dates: start: 20190909

REACTIONS (1)
  - Liver disorder [Unknown]

NARRATIVE: CASE EVENT DATE: 2020
